FAERS Safety Report 8887028 (Version 1)
Quarter: 2012Q4

REPORT INFORMATION
  Report Type: Report from Study
  Country: US (occurrence: US)
  Receive Date: 20121105
  Receipt Date: 20121105
  Transmission Date: 20130627
  Serious: Yes (Other)
  Sender: FDA-Public Use
  Company Number: US-ROCHE-1067381

PATIENT
  Age: 61 Year
  Sex: Male

DRUGS (5)
  1. PEG-INTERFERON ALFA 2A [Suspect]
     Indication: HEPATITIS C
     Route: 058
     Dates: start: 20120506, end: 20120930
  2. RIBAVIRIN [Suspect]
     Indication: HEPATITIS C
     Dosage: in divided doses
     Route: 048
     Dates: start: 20120506, end: 20120930
  3. TELAPREVIR [Suspect]
     Indication: HEPATITIS C
     Route: 065
     Dates: start: 20120506
  4. LEXAPRO [Concomitant]
     Route: 065
  5. LAMOTRIGINE [Concomitant]
     Route: 065

REACTIONS (22)
  - Chronic obstructive pulmonary disease [Unknown]
  - Insomnia [Unknown]
  - Headache [Unknown]
  - Depression [Unknown]
  - Viral infection [Unknown]
  - Dyspnoea [Unknown]
  - Contusion [Unknown]
  - Blood pressure increased [Unknown]
  - Fatigue [Unknown]
  - White blood cell count decreased [Unknown]
  - Insomnia [Unknown]
  - Nausea [Unknown]
  - Dry mouth [Unknown]
  - Weight increased [Unknown]
  - Decreased appetite [Unknown]
  - Weight decreased [Unknown]
  - Dyspnoea [Unknown]
  - Heart rate increased [Unknown]
  - Asthenia [Unknown]
  - Cardiac failure congestive [Unknown]
  - Abdominal pain upper [Unknown]
  - Frequent bowel movements [Unknown]
